FAERS Safety Report 17769995 (Version 1)
Quarter: 2020Q2

REPORT INFORMATION
  Report Type: Spontaneous
  Country: US (occurrence: US)
  Receive Date: 20200512
  Receipt Date: 20200512
  Transmission Date: 20200714
  Serious: No
  Sender: FDA-Public Use
  Company Number: US-ELI_LILLY_AND_COMPANY-US202005002212

PATIENT
  Age: 38 Year
  Sex: Male

DRUGS (3)
  1. CIALIS [Suspect]
     Active Substance: TADALAFIL
     Indication: PRODUCT USED FOR UNKNOWN INDICATION
     Dosage: 1 DOSAGE FORM, DAILY
     Route: 065
  2. CIALIS [Interacting]
     Active Substance: TADALAFIL
     Dosage: 0.5 DOSAGE FORM, DAILY
     Route: 065
  3. COBICISTAT;ELVITEGRAVIR;EMTRICITABINE;TENOFOVIR [Interacting]
     Active Substance: COBICISTAT\ELVITEGRAVIR\EMTRICITABINE\TENOFOVIR
     Indication: HIV INFECTION
     Dosage: UNK UNK, UNKNOWN
     Route: 065

REACTIONS (3)
  - Drug interaction [Recovered/Resolved]
  - Photopsia [Recovered/Resolved]
  - Headache [Recovered/Resolved]
